FAERS Safety Report 6140821-0 (Version None)
Quarter: 2009Q2

REPORT INFORMATION
  Report Type: 
  Country: None (occurrence: None)
  Receive Date: 20090402
  Receipt Date: 20090331
  Transmission Date: 20091009
  Serious: No
  Sender: FDA-Public Use
  Company Number: US-B.I. PHARMACEUTICALS,INC./RIDGEFIELD-2009-BP-02024BP

PATIENT
  Age: 72 Year
  Sex: Female

DRUGS (9)
  1. MIRAPEX [Suspect]
     Indication: RESTLESS LEGS SYNDROME
     Dosage: .25MG
     Route: 048
     Dates: start: 20090101
  2. ADVAIR HFA [Concomitant]
     Indication: CHRONIC OBSTRUCTIVE PULMONARY DISEASE
  3. ATENOLOL [Concomitant]
  4. BENICAR [Concomitant]
  5. PLAVIX [Concomitant]
  6. ASPIRIN [Concomitant]
  7. VYTORIN [Concomitant]
  8. PREVACID [Concomitant]
  9. SUPHEDRIN [Concomitant]

REACTIONS (4)
  - ABNORMAL BEHAVIOUR [None]
  - HALLUCINATION, AUDITORY [None]
  - HALLUCINATION, VISUAL [None]
  - PAROSMIA [None]
